FAERS Safety Report 15636972 (Version 1)
Quarter: 2018Q4

REPORT INFORMATION
  Report Type: Spontaneous
  Country: US (occurrence: US)
  Receive Date: 20181120
  Receipt Date: 20181120
  Transmission Date: 20190205
  Serious: Yes (Hospitalization, Other)
  Sender: FDA-Public Use
  Company Number: US-SA-2018SA127544

PATIENT
  Age: 70 Year
  Sex: Male

DRUGS (1)
  1. PRALUENT [Suspect]
     Active Substance: ALIROCUMAB
     Dosage: 150 MG,QOW
     Route: 058
     Dates: start: 201803

REACTIONS (3)
  - Rhinorrhoea [Unknown]
  - Knee operation [Unknown]
  - Procedural pain [Unknown]

NARRATIVE: CASE EVENT DATE: 2018
